FAERS Safety Report 23903538 (Version 1)
Quarter: 2024Q2

REPORT INFORMATION
  Report Type: Spontaneous
  Country: CN (occurrence: CN)
  Receive Date: 20240527
  Receipt Date: 20240527
  Transmission Date: 20240716
  Serious: Yes (Hospitalization, Other)
  Sender: FDA-Public Use
  Company Number: CN-ORGANON-O2405CHN002201

PATIENT
  Age: 60 Year
  Sex: Female

DRUGS (1)
  1. FOSAMAX [Suspect]
     Active Substance: ALENDRONATE SODIUM
     Indication: Osteoporosis
     Dosage: 1 TABLET, WEEKLY, PO||
     Route: 048
     Dates: start: 20240101, end: 20240126

REACTIONS (12)
  - Colitis erosive [Recovering/Resolving]
  - Haemorrhoids [Recovering/Resolving]
  - Large intestine polyp [Recovering/Resolving]
  - Chronic gastritis [Recovering/Resolving]
  - Haematochezia [Recovered/Resolved]
  - Abdominal discomfort [Recovering/Resolving]
  - Abdominal pain [Recovered/Resolved]
  - Abdominal distension [Recovered/Resolved]
  - Regurgitation [Recovered/Resolved]
  - Dyspepsia [Recovered/Resolved]
  - Eructation [Recovered/Resolved]
  - Chest discomfort [Recovered/Resolved]

NARRATIVE: CASE EVENT DATE: 20240104
